FAERS Safety Report 24274524 (Version 2)
Quarter: 2024Q4

REPORT INFORMATION
  Report Type: Report from Study
  Country: CA (occurrence: CA)
  Receive Date: 20240902
  Receipt Date: 20241210
  Transmission Date: 20250115
  Serious: Yes (Hospitalization, Other)
  Sender: SANOFI AVENTIS
  Company Number: CA-SA-SAC20230806000063

PATIENT
  Age: 67 Year
  Sex: Female

DRUGS (27)
  1. SARILUMAB [Suspect]
     Active Substance: SARILUMAB
     Indication: Rheumatoid arthritis
     Dosage: 200 MG, QOW
     Route: 058
     Dates: start: 20230802, end: 2023
  2. SARILUMAB [Suspect]
     Active Substance: SARILUMAB
     Dosage: 200 MG, QOW
     Route: 058
     Dates: start: 2023, end: 20231226
  3. SARILUMAB [Suspect]
     Active Substance: SARILUMAB
     Dosage: 150 MG, Q3W
     Route: 058
  4. SARILUMAB [Suspect]
     Active Substance: SARILUMAB
     Dosage: 200 MG, QOW
     Route: 058
     Dates: end: 20240607
  5. CORTISONE ACETATE [Suspect]
     Active Substance: CORTISONE ACETATE
     Indication: Arthralgia
     Dosage: 6 MG
     Route: 065
     Dates: start: 2024
  6. CORTISONE ACETATE [Suspect]
     Active Substance: CORTISONE ACETATE
     Indication: Inflammation
     Dosage: 30 MG
     Route: 065
     Dates: start: 2024
  7. CORTISONE ACETATE [Suspect]
     Active Substance: CORTISONE ACETATE
     Indication: Dyspnoea
     Dosage: 2 MG
     Route: 065
  8. CORTISONE ACETATE [Suspect]
     Active Substance: CORTISONE ACETATE
     Indication: Chest pain
  9. CORTISONE ACETATE [Suspect]
     Active Substance: CORTISONE ACETATE
     Indication: Pain
  10. CORTISONE ACETATE [Suspect]
     Active Substance: CORTISONE ACETATE
     Indication: Pain in extremity
  11. TRESIBA [Concomitant]
     Active Substance: INSULIN DEGLUDEC
     Dosage: UNK
     Route: 065
  12. ACTEMRA [Concomitant]
     Active Substance: TOCILIZUMAB
     Dosage: UNK
     Route: 065
  13. MEDROL [Concomitant]
     Active Substance: METHYLPREDNISOLONE
     Indication: Inflammation
     Dosage: 6 MG
     Route: 065
  14. MEDROL [Concomitant]
     Active Substance: METHYLPREDNISOLONE
     Indication: Rheumatoid arthritis
     Dosage: 4 MG
     Route: 065
  15. MEDROL [Concomitant]
     Active Substance: METHYLPREDNISOLONE
     Dosage: 2 MG
     Route: 065
  16. VENLAFAXINE [Concomitant]
     Active Substance: VENLAFAXINE HYDROCHLORIDE
     Indication: Pain
     Dosage: UNK
     Route: 065
  17. VITAMIN D NOS [Concomitant]
     Active Substance: CHOLECALCIFEROL\ERGOCALCIFEROL
     Dosage: UNK
     Route: 065
  18. CALCIUM [Concomitant]
     Active Substance: CALCIUM
     Dosage: UNK
     Route: 065
  19. INSULIN HUMAN [Concomitant]
     Active Substance: INSULIN HUMAN
     Dosage: UNK
     Route: 065
  20. ACRIVASTINE [Concomitant]
     Active Substance: ACRIVASTINE
     Dosage: UNK
     Route: 065
  21. DICLOFENAC [Concomitant]
     Active Substance: DICLOFENAC
     Dosage: UNK
     Route: 065
  22. NITROFURANTOIN [Concomitant]
     Active Substance: NITROFURANTOIN
     Dosage: 100MG, FOR 7 DAYS
     Route: 065
  23. ADVIL [Concomitant]
     Active Substance: IBUPROFEN
     Dosage: UNK
     Route: 065
  24. BENADRYL [Concomitant]
     Active Substance: DIPHENHYDRAMINE HYDROCHLORIDE
     Dosage: UNK
     Route: 065
  25. METHYLPREDNISOLONE [Concomitant]
     Active Substance: METHYLPREDNISOLONE
     Dosage: UNK
     Route: 065
  26. AMPICILLIN TRIHYDRATE\DICLOXACILLIN SODIUM [Concomitant]
     Active Substance: AMPICILLIN TRIHYDRATE\DICLOXACILLIN SODIUM
     Dosage: UNK
     Route: 065
  27. IODINE [Concomitant]
     Active Substance: IODINE
     Dosage: UNK
     Route: 065

REACTIONS (95)
  - Myocardial infarction [Not Recovered/Not Resolved]
  - Kidney infection [Not Recovered/Not Resolved]
  - Gastric ulcer [Not Recovered/Not Resolved]
  - Diarrhoea [Not Recovered/Not Resolved]
  - Chest pain [Recovering/Resolving]
  - Myocardial necrosis marker increased [Not Recovered/Not Resolved]
  - Haematochezia [Not Recovered/Not Resolved]
  - Arthralgia [Recovering/Resolving]
  - Decreased appetite [Unknown]
  - Inflammation [Recovering/Resolving]
  - Drug hypersensitivity [Unknown]
  - Abdominal pain upper [Not Recovered/Not Resolved]
  - Injection site pain [Recovered/Resolved]
  - Injection site inflammation [Not Recovered/Not Resolved]
  - Injection site discolouration [Not Recovered/Not Resolved]
  - Injection site pain [Not Recovered/Not Resolved]
  - Hyperhidrosis [Not Recovered/Not Resolved]
  - Malaise [Not Recovered/Not Resolved]
  - Illness [Not Recovered/Not Resolved]
  - Cough [Not Recovered/Not Resolved]
  - Fatigue [Not Recovered/Not Resolved]
  - Asthenia [Not Recovered/Not Resolved]
  - Rhinorrhoea [Not Recovered/Not Resolved]
  - Injection site swelling [Not Recovered/Not Resolved]
  - Injection site swelling [Recovered/Resolved]
  - Injection site erythema [Not Recovered/Not Resolved]
  - Conjunctivitis [Not Recovered/Not Resolved]
  - Infection [Recovered/Resolved]
  - Influenza [Not Recovered/Not Resolved]
  - Headache [Recovered/Resolved]
  - Urinary tract infection [Recovered/Resolved]
  - Nasal discomfort [Recovered/Resolved]
  - Rhinorrhoea [Not Recovered/Not Resolved]
  - Myalgia [Recovered/Resolved]
  - Diarrhoea [Recovered/Resolved]
  - Epistaxis [Recovered/Resolved]
  - Oropharyngeal pain [Recovered/Resolved]
  - Anxiety [Unknown]
  - Tendonitis [Recovering/Resolving]
  - Dyspnoea [Not Recovered/Not Resolved]
  - Blood glucose abnormal [Unknown]
  - Pharyngeal erythema [Recovered/Resolved]
  - Erythema [Recovered/Resolved]
  - Eye swelling [Recovered/Resolved]
  - Erythema of eyelid [Recovered/Resolved]
  - Joint stiffness [Not Recovered/Not Resolved]
  - Dizziness [Unknown]
  - Bursitis [Recovering/Resolving]
  - Osteoarthritis [Not Recovered/Not Resolved]
  - Blood glucose increased [Unknown]
  - Pain [Recovered/Resolved]
  - Dry mouth [Unknown]
  - Gait disturbance [Recovering/Resolving]
  - Constipation [Not Recovered/Not Resolved]
  - Musculoskeletal pain [Unknown]
  - Pain in extremity [Not Recovered/Not Resolved]
  - Back pain [Not Recovered/Not Resolved]
  - Oropharyngeal pain [Recovered/Resolved]
  - Feeling cold [Unknown]
  - Somnolence [Unknown]
  - Feeling hot [Unknown]
  - Micturition urgency [Not Recovered/Not Resolved]
  - Dysuria [Not Recovered/Not Resolved]
  - Skin irritation [Not Recovered/Not Resolved]
  - Vulvovaginal pruritus [Not Recovered/Not Resolved]
  - Rhinalgia [Not Recovered/Not Resolved]
  - Mobility decreased [Not Recovered/Not Resolved]
  - Insomnia [Unknown]
  - Micturition frequency decreased [Unknown]
  - Burning sensation [Not Recovered/Not Resolved]
  - Stress [Unknown]
  - Nasal discomfort [Not Recovered/Not Resolved]
  - Urine odour abnormal [Recovering/Resolving]
  - Vomiting [Not Recovered/Not Resolved]
  - Haemorrhoids [Not Recovered/Not Resolved]
  - Fall [Not Recovered/Not Resolved]
  - Bone pain [Not Recovered/Not Resolved]
  - Peripheral swelling [Not Recovered/Not Resolved]
  - Arthritis [Not Recovered/Not Resolved]
  - Dysphagia [Not Recovered/Not Resolved]
  - Spinal pain [Not Recovered/Not Resolved]
  - Neck pain [Not Recovered/Not Resolved]
  - Lower respiratory tract congestion [Not Recovered/Not Resolved]
  - Nasal congestion [Unknown]
  - Abdominal pain upper [Not Recovered/Not Resolved]
  - Eye pain [Not Recovered/Not Resolved]
  - Eye disorder [Not Recovered/Not Resolved]
  - Swelling [Not Recovered/Not Resolved]
  - Condition aggravated [Not Recovered/Not Resolved]
  - Fatigue [Not Recovered/Not Resolved]
  - Oral herpes [Not Recovered/Not Resolved]
  - Nasopharyngitis [Unknown]
  - Sinusitis [Not Recovered/Not Resolved]
  - Wrong technique in product usage process [Unknown]
  - Off label use [Unknown]

NARRATIVE: CASE EVENT DATE: 20230101
